FAERS Safety Report 8712000 (Version 3)
Quarter: 2012Q4

REPORT INFORMATION
  Report Type: 
  Country: US (occurrence: US)
  Receive Date: 20120807
  Receipt Date: 20120925
  Transmission Date: 20130627
  Serious: Yes (Other)
  Sender: FDA-Public Use
  Company Number: CHPA2012US013949

PATIENT
  Age: 54 None
  Sex: Female

DRUGS (8)
  1. EXCEDRIN EXTRA STRENGTH [Suspect]
     Indication: BACK PAIN
     Dosage: 4 DF, A DAY
     Route: 048
  2. EXCEDRIN EXTRA STRENGTH [Suspect]
     Dosage: Half the bottle
     Route: 048
  3. ANTIDEPRESSANTS [Concomitant]
     Indication: DEPRESSION
     Dosage: Unk, Unk
     Route: 048
  4. HORMONES [Concomitant]
     Dosage: Unk, Unk
     Route: 048
  5. NEXIUM                             /01479302/ [Concomitant]
     Dosage: 40 mg, QD
     Route: 048
  6. VITAMIN B12 FOR INJECTION [Concomitant]
     Dosage: 1000 ug/ml, Unk
  7. EFFEXOR [Concomitant]
     Dosage: 150 mg, QD
  8. ESTRADIOL [Concomitant]
     Dosage: 1 mg, Unk

REACTIONS (12)
  - Loss of consciousness [Recovered/Resolved]
  - Head injury [Recovered/Resolved]
  - Neoplasm [Not Recovered/Not Resolved]
  - Hepatic encephalopathy [Unknown]
  - Blood cholesterol increased [Not Recovered/Not Resolved]
  - Crying [Not Recovered/Not Resolved]
  - Confusional state [Not Recovered/Not Resolved]
  - Overdose [Unknown]
  - Incorrect drug administration duration [Unknown]
  - Product quality issue [None]
  - Product quality issue [None]
  - Tablet physical issue [None]
